FAERS Safety Report 4385686-2 (Version None)
Quarter: 2004Q2

REPORT INFORMATION
  Report Type: 
  Country: None (occurrence: None)
  Receive Date: 20040622
  Receipt Date: 20040607
  Transmission Date: 20050107
  Serious: Yes (Other)
  Sender: FDA-Public Use
  Company Number: A0513914A

PATIENT
  Age: 37 Year
  Sex: Male

DRUGS (1)
  1. COMMIT [Suspect]
     Indication: EX-SMOKER
     Dosage: 4 MG/TRANSBUCCAL

REACTIONS (2)
  - DEPENDENCE [None]
  - NICOTINE DEPENDENCE [None]
